FAERS Safety Report 5010085-X (Version None)
Quarter: 2006Q2

REPORT INFORMATION
  Report Type: 
  Country: None (occurrence: None)
  Receive Date: 20060523
  Receipt Date: 20060510
  Transmission Date: 20061013
  Serious: Yes (Other)
  Sender: FDA-Public Use
  Company Number: 2006035656

PATIENT
  Age: 74 Year
  Sex: Female

DRUGS (8)
  1. PREDNISOLONE [Suspect]
     Indication: SURGERY
     Dosage: (4 IN 1 D), OPHTHALMIC
     Route: 047
  2. LIGNOCAINE (LIGNOCAINE) [Suspect]
     Indication: LOCAL ANAESTHESIA
     Dosage: (4 ML), INTRAOCULAR
     Route: 031
  3. BUPIVACAINE [Suspect]
     Indication: LOCAL ANAESTHESIA
     Dosage: (20 MG), INTRAOCULAR
     Route: 031
  4. HYALURONIDASE [Suspect]
     Indication: LOCAL ANAESTHESIA
     Dosage: (500 I.U.,) INTRAOCULAR
     Route: 031
  5. POVIDONE IODINE [Suspect]
     Indication: ENDOPHTHALMITIS
     Dosage: INTRAOCULAR
     Route: 031
  6. PROXYMETACAINE (PROXYMETACAINE) [Suspect]
     Indication: LOCAL ANAESTHESIA
     Dosage: INTRAOCULAR
     Route: 031
  7. CEFUROXIME [Concomitant]
  8. CHLORAMPHENICOL [Concomitant]

REACTIONS (13)
  - BODY TEMPERATURE DECREASED [None]
  - CONJUNCTIVAL OEDEMA [None]
  - ENDOPHTHALMITIS [None]
  - EXOPHTHALMOS [None]
  - EYE INFLAMMATION [None]
  - EYE MOVEMENT DISORDER [None]
  - EYE PAIN [None]
  - EYELID OEDEMA [None]
  - INTRAOCULAR PRESSURE INCREASED [None]
  - MASS [None]
  - PAPILLOEDEMA [None]
  - POST PROCEDURAL COMPLICATION [None]
  - VISUAL ACUITY REDUCED [None]
